FAERS Safety Report 17116865 (Version 1)
Quarter: 2019Q4

REPORT INFORMATION
  Report Type: Spontaneous
  Country: PT (occurrence: PT)
  Receive Date: 20191205
  Receipt Date: 20191205
  Transmission Date: 20200122
  Serious: Yes (Other)
  Sender: FDA-Public Use
  Company Number: PT-MYLANLABS-2019M1118849

PATIENT
  Age: 86 Year
  Sex: Female

DRUGS (5)
  1. EZETIMIBE MYLAN [Suspect]
     Active Substance: EZETIMIBE
     Indication: HYPERCHOLESTEROLAEMIA
     Dosage: 10 MILLIGRAM, QD
     Route: 048
     Dates: start: 20190702, end: 20190704
  2. PRITORPLUS [Concomitant]
     Active Substance: HYDROCHLOROTHIAZIDE\TELMISARTAN
     Dosage: UNK
     Route: 048
  3. FUROSEMIDE. [Concomitant]
     Active Substance: FUROSEMIDE
     Dosage: UNK
     Route: 065
  4. TROMALYT [Concomitant]
     Active Substance: ASPIRIN
     Dosage: UNK
     Route: 048
  5. SERETAIDE DISKUS [Concomitant]
     Dosage: UNK
     Route: 055

REACTIONS (3)
  - Product substitution issue [Recovered/Resolved]
  - Respiratory distress [Recovered/Resolved]
  - Throat tightness [Recovered/Resolved]

NARRATIVE: CASE EVENT DATE: 20190702
